FAERS Safety Report 5944372-5 (Version None)
Quarter: 2008Q4

REPORT INFORMATION
  Report Type: 
  Country: None (occurrence: None)
  Receive Date: 20081106
  Receipt Date: 20081106
  Transmission Date: 20090506
  Serious: Yes (Hospitalization)
  Sender: FDA-Public Use
  Company Number: None

PATIENT
  Sex: Male
  Weight: 74 kg

DRUGS (3)
  1. FLUOROURACIL [Suspect]
     Indication: TONGUE NEOPLASM MALIGNANT STAGE UNSPECIFIED
     Dosage: 600MG/M2 IV X 5 DAYS
     Route: 042
     Dates: start: 20081005, end: 20081010
  2. HYDREA [Suspect]
     Indication: TONGUE NEOPLASM MALIGNANT STAGE UNSPECIFIED
     Dosage: 500MG PO BID
     Route: 048
     Dates: start: 20081005, end: 20081010
  3. CETUXIMAB [Suspect]

REACTIONS (2)
  - BACTERIAL INFECTION [None]
  - PLEURAL EFFUSION [None]
